FAERS Safety Report 7938320-6 (Version None)
Quarter: 2011Q4

REPORT INFORMATION
  Report Type: 
  Country: None (occurrence: None)
  Receive Date: 20111123
  Receipt Date: 20111118
  Transmission Date: 20120403
  Serious: Yes (Hospitalization)
  Sender: FDA-Public Use
  Company Number: US-ABBOTT-11P-163-0876060-00

PATIENT
  Age: 54 Year
  Sex: Female

DRUGS (6)
  1. VICODIN ES [Concomitant]
     Indication: PAIN
  2. HUMIRA [Suspect]
     Indication: CROHN'S DISEASE
     Dates: start: 20110915
  3. FLAGYL [Concomitant]
     Indication: CROHN'S DISEASE
  4. LITHIUM CARBONATE [Concomitant]
     Indication: CROHN'S DISEASE
     Dosage: TWICE DAILY, ER
  5. CIPROFLOXACIN [Concomitant]
     Indication: CROHN'S DISEASE
  6. PREDNISONE TAB [Concomitant]
     Indication: PRODUCT USED FOR UNKNOWN INDICATION

REACTIONS (6)
  - FAECAL INCONTINENCE [None]
  - DIARRHOEA [None]
  - ABDOMINAL PAIN [None]
  - ABDOMINAL DISTENSION [None]
  - VOMITING [None]
  - UNEVALUABLE EVENT [None]
